FAERS Safety Report 8749271 (Version 2)
Quarter: 2012Q4

REPORT INFORMATION
  Report Type: Spontaneous
  Country: US (occurrence: None)
  Receive Date: 20120805
  Receipt Date: 20120814
  Transmission Date: 20130627
  Serious: Yes (Hospitalization)
  Sender: FDA-Public Use
  Company Number: 2012PROUSA01711

PATIENT
  Age: 56 Year
  Sex: Male

DRUGS (16)
  1. PROVENGE [Suspect]
     Indication: PROSTATE CANCER METASTATIC
     Dosage: 250 ML, SINGLE, INTRAVENOUS
     Route: 042
     Dates: start: 20120622, end: 20120622
  2. PROVENGE [Suspect]
     Dosage: 250 ML, SINGLE, INTRAVENOUS
     Route: 042
     Dates: start: 20120713, end: 20120713
  3. XGEVA (DENOSUMAB) [Concomitant]
  4. ZOLADEX (GOSERLIN ACETATE) [Concomitant]
  5. SIMVASTATIN [Concomitant]
  6. COUMADIN (WARFARIN SODIUM) [Concomitant]
  7. CALTRATE WITH VITAMIN D [Concomitant]
  8. VALTREX (VALACICLOVIR HYDROCHLORIDE) [Concomitant]
  9. ASPIRIN (ACETYLSALICYLIC ACID) [Concomitant]
  10. CHLORTHALIDONE (CHLORTALIDONE) [Concomitant]
  11. DULCOLAX (BISACODYL) [Concomitant]
  12. IRON (ASCORBIC ACID, BETAINE HYDROCHLORIDE, COPPER, CYANOCOBALAMIN, FOLIC ACID, IRON, MANGANESE, NICOTINAMIDE, PYRIDOXINE HYDROCHLORIDE, RIBOFLAVIN, THIAMINE HYDROCHLORIDE) [Concomitant]
  13. PROCHLORPERAZINE (PROCHLORPERAZINE MALEATE) [Concomitant]
  14. EMLA (LIDOCAINE, PRILOCAINE) [Concomitant]
  15. POTASSIUM CHLORIDE [Concomitant]
  16. NEXIUM (ESOMEPRAZOLE MAGNESIUM) [Concomitant]

REACTIONS (8)
  - Nervous system disorder [None]
  - Urinary retention [None]
  - Disease progression [None]
  - Feeling cold [None]
  - Hypokalaemia [None]
  - Micturition disorder [None]
  - Constipation [None]
  - Hypokalaemia [None]
